FAERS Safety Report 15287163 (Version 2)
Quarter: 2018Q3

REPORT INFORMATION
  Report Type: Spontaneous
  Country: US (occurrence: US)
  Receive Date: 20180817
  Receipt Date: 20180824
  Transmission Date: 20181010
  Serious: Yes (Life-Threatening, Hospitalization, Other)
  Sender: FDA-Public Use
  Company Number: US-DRREDDYS-USA/USA/18/0103048

PATIENT
  Age: 63 Year
  Sex: Male

DRUGS (4)
  1. OLANZAPINE FILM?COATED TABLET [Suspect]
     Active Substance: OLANZAPINE
     Indication: DEPRESSION
  2. FLUOXETINE [Suspect]
     Active Substance: FLUOXETINE HYDROCHLORIDE
     Indication: SCHIZOPHRENIA
  3. OLANZAPINE FILM?COATED TABLET [Suspect]
     Active Substance: OLANZAPINE
     Indication: SCHIZOPHRENIA
     Route: 048
  4. FLUOXETINE [Suspect]
     Active Substance: FLUOXETINE HYDROCHLORIDE
     Indication: DEPRESSION
     Route: 065

REACTIONS (7)
  - Rhabdomyolysis [Unknown]
  - Atrial flutter [Recovering/Resolving]
  - Serotonin syndrome [Recovering/Resolving]
  - Blood pressure fluctuation [Recovering/Resolving]
  - Hyperkalaemia [Unknown]
  - Lactic acidosis [Recovering/Resolving]
  - Myoclonus [Unknown]
